FAERS Safety Report 4999006-3 (Version None)
Quarter: 2006Q2

REPORT INFORMATION
  Report Type: 
  Country: None (occurrence: None)
  Receive Date: 20060509
  Receipt Date: 20060418
  Transmission Date: 20061013
  Serious: Yes (Hospitalization)
  Sender: FDA-Public Use
  Company Number: US200604004351

PATIENT
  Sex: Female

DRUGS (5)
  1. CYMBALTA [Suspect]
     Indication: PAIN
     Dosage: 30 MG ;SEE IMAGE
     Dates: start: 20050101
  2. AVINZA /USA/ (MORPHINE SULFATE) [Concomitant]
  3. NORVASC /DEN/ (AMLODIPINE BESILATE) [Concomitant]
  4. ATENOLOL [Concomitant]
  5. GLUCOPHAGE [Concomitant]

REACTIONS (6)
  - CONDITION AGGRAVATED [None]
  - CRYING [None]
  - DEPRESSION [None]
  - GALLBLADDER OPERATION [None]
  - HEART RATE INCREASED [None]
  - HYPERTENSION [None]
